FAERS Safety Report 8531252-4 (Version None)
Quarter: 2012Q3

REPORT INFORMATION
  Report Type: 
  Country: None (occurrence: None)
  Receive Date: 20120723
  Receipt Date: 20120628
  Transmission Date: 20120928
  Serious: No
  Sender: FDA-Public Use
  Company Number: US-ROXANE LABORATORIES, INC.-2012-RO-01508RO

PATIENT
  Sex: Female

DRUGS (1)
  1. LOSARTAN POTASSIUM [Suspect]
     Dosage: 50 MG

REACTIONS (2)
  - DRUG INEFFECTIVE [None]
  - ABDOMINAL DISCOMFORT [None]
